FAERS Safety Report 8479330-2 (Version None)
Quarter: 2012Q2

REPORT INFORMATION
  Report Type: 
  Country: None (occurrence: None)
  Receive Date: 20120629
  Receipt Date: 20120622
  Transmission Date: 20120825
  Serious: Yes (Hospitalization, Disabling)
  Sender: FDA-Public Use
  Company Number: JP-B.I. PHARMACEUTICALS,INC./RIDGEFIELD-2012-BP-14254NB

PATIENT
  Age: 70 Year
  Sex: Male
  Weight: 69 kg

DRUGS (5)
  1. PLAVIX [Suspect]
     Indication: MYOCARDIAL INFARCTION
     Route: 065
     Dates: end: 20120622
  2. HEPARIN [Suspect]
     Route: 065
     Dates: end: 20120622
  3. ASPIRIN [Suspect]
     Indication: MYOCARDIAL INFARCTION
     Route: 065
     Dates: end: 20120622
  4. PRADAXA [Suspect]
     Indication: ATRIAL FIBRILLATION
     Dosage: 300 MG
     Route: 065
     Dates: start: 20111101
  5. PRADAXA [Suspect]
     Dosage: 220 MG
     Route: 065
     Dates: start: 20120601, end: 20120622

REACTIONS (3)
  - HAEMORRHAGIC CEREBRAL INFARCTION [None]
  - HAEMATOCHEZIA [None]
  - MYOCARDIAL INFARCTION [None]
